FAERS Safety Report 17839758 (Version 1)
Quarter: 2020Q2

REPORT INFORMATION
  Report Type: Spontaneous
  Country: US (occurrence: US)
  Receive Date: 20200529
  Receipt Date: 20200529
  Transmission Date: 20200714
  Serious: Yes (Hospitalization)
  Sender: FDA-Public Use
  Company Number: None

PATIENT
  Age: 69 Year
  Sex: Male
  Weight: 125.74 kg

DRUGS (9)
  1. ACYCLOVIR. [Concomitant]
     Active Substance: ACYCLOVIR
  2. METOPROLOL. [Concomitant]
     Active Substance: METOPROLOL
  3. RITUXIMAB (MOABC2B8 ANTI CD20, CHIMERIC) [Suspect]
     Active Substance: RITUXIMAB
     Dates: end: 20200423
  4. PROCHLORPERAZINE. [Concomitant]
     Active Substance: PROCHLORPERAZINE
  5. PREDNISOLONE. [Concomitant]
     Active Substance: PREDNISOLONE
  6. LISINOPRIL. [Concomitant]
     Active Substance: LISINOPRIL
  7. METFORMIN [Concomitant]
     Active Substance: METFORMIN HYDROCHLORIDE
  8. NOVOLIN NOS [Concomitant]
     Active Substance: INSULIN HUMAN
  9. CYTARABINE. [Suspect]
     Active Substance: CYTARABINE
     Dates: end: 20200424

REACTIONS (12)
  - Thrombocytopenia [None]
  - Vomiting [None]
  - Acute kidney injury [None]
  - Traumatic ulcer [None]
  - Procalcitonin increased [None]
  - Cellulitis [None]
  - Febrile neutropenia [None]
  - Leukopenia [None]
  - Limb injury [None]
  - Nausea [None]
  - Pseudomonal sepsis [None]
  - Anaemia [None]

NARRATIVE: CASE EVENT DATE: 20200503
